FAERS Safety Report 8371293-3 (Version None)
Quarter: 2012Q2

REPORT INFORMATION
  Report Type: 
  Country: None (occurrence: None)
  Receive Date: 20120517
  Receipt Date: 20120504
  Transmission Date: 20120825
  Serious: Yes (Death)
  Sender: FDA-Public Use
  Company Number: 201205000018

PATIENT

DRUGS (1)
  1. INOMAX [Suspect]
     Indication: PRODUCT USED FOR UNKNOWN INDICATION
     Dosage: CONTINUOUS, INHALATION
     Route: 055
     Dates: start: 20120311, end: 20120312

REACTIONS (1)
  - DEATH [None]
